FAERS Safety Report 24640766 (Version 1)
Quarter: 2024Q4

REPORT INFORMATION
  Report Type: Spontaneous
  Country: BE (occurrence: BE)
  Receive Date: 20241120
  Receipt Date: 20241120
  Transmission Date: 20250114
  Serious: Yes (Hospitalization, Other)
  Sender: TEVA
  Company Number: None

PATIENT
  Age: 34 Year
  Sex: Female
  Weight: 63 kg

DRUGS (12)
  1. EPIRUBICIN [Suspect]
     Active Substance: EPIRUBICIN
     Indication: Triple negative breast cancer
     Dosage: TIME INTERVAL: TOTAL
     Route: 065
     Dates: start: 20241004
  2. KEYTRUDA [Suspect]
     Active Substance: PEMBROLIZUMAB
     Indication: Triple negative breast cancer
     Dosage: TIME INTERVAL: TOTAL: EVERY 3 WEEKS
     Route: 065
     Dates: start: 20241004
  3. POVIDONE-IODINE [Concomitant]
     Active Substance: POVIDONE-IODINE
     Indication: Product used for unknown indication
     Dosage: BUCCAL
     Route: 065
  4. VENTOLIN [Concomitant]
     Active Substance: ALBUTEROL SULFATE
     Indication: Product used for unknown indication
     Dosage: TIME INTERVAL: AS NECESSARY
     Route: 065
  5. PALONOSETRON NETUPITANT [Concomitant]
     Indication: Product used for unknown indication
     Dosage: STRENGTHS: PALONOSETRON - 0.5 MG ; NETUPITANT 300MG
     Route: 065
     Dates: start: 20241004
  6. BEFACT FORTE [Concomitant]
     Indication: Product used for unknown indication
     Route: 065
  7. RUPATALL [Concomitant]
     Indication: Product used for unknown indication
     Dosage: 2 TABS 2X/D
     Route: 065
  8. ESTIVAN [Concomitant]
     Indication: Product used for unknown indication
     Route: 065
  9. ZIEXTENZO [Suspect]
     Active Substance: PEGFILGRASTIM-BMEZ
     Indication: Neutropenia
     Dosage: TIME INTERVAL: TOTAL: 1 DAY AFTER THE COURSE OF CHEMOTHERAPY, 1ST INJECTION OF ZIEXTENZO FOR THIS...
     Route: 058
     Dates: start: 20241005
  10. ALIZAPRIDE HYDROCHLORIDE [Concomitant]
     Active Substance: ALIZAPRIDE HYDROCHLORIDE
     Indication: Product used for unknown indication
     Dosage: IF NEEDED
     Route: 065
  11. CYCLOPHOSPHAMIDE [Suspect]
     Active Substance: CYCLOPHOSPHAMIDE
     Indication: Triple negative breast cancer
     Dosage: TIME INTERVAL: TOTAL
     Route: 065
     Dates: start: 20241004
  12. DEXAMETHASONE [Concomitant]
     Active Substance: DEXAMETHASONE
     Indication: Product used for unknown indication
     Route: 065
     Dates: start: 20241004

REACTIONS (9)
  - Pancytopenia [Recovering/Resolving]
  - Normocytic anaemia [Recovering/Resolving]
  - Odynophagia [Recovering/Resolving]
  - Feeding disorder [Recovering/Resolving]
  - Pyrexia [Recovering/Resolving]
  - Thrombocytopenia [Recovering/Resolving]
  - Drug ineffective [Recovering/Resolving]
  - Neutropenia [Recovering/Resolving]
  - Leukopenia [Recovering/Resolving]

NARRATIVE: CASE EVENT DATE: 20241006
